FAERS Safety Report 9187213 (Version 2)
Quarter: 2013Q2

REPORT INFORMATION
  Report Type: Spontaneous
  Country: IT (occurrence: IT)
  Receive Date: 20130322
  Receipt Date: 20130423
  Transmission Date: 20140414
  Serious: Yes (Hospitalization)
  Sender: FDA-Public Use
  Company Number: CHPA2013IT005160

PATIENT
  Age: 70 Year
  Sex: Male

DRUGS (1)
  1. PURSENNID [Suspect]
     Indication: ASTRINGENT THERAPY
     Dosage: 12 MG, QD
     Route: 048
     Dates: start: 20130206, end: 20130210

REACTIONS (1)
  - Enteritis [Recovered/Resolved]
